FAERS Safety Report 21875045 (Version 1)
Quarter: 2023Q1

REPORT INFORMATION
  Report Type: Spontaneous
  Country: US (occurrence: US)
  Receive Date: 20230117
  Receipt Date: 20230117
  Transmission Date: 20230418
  Serious: No
  Sender: FDA-Public Use
  Company Number: US-009507513-2301USA004486

PATIENT
  Age: 38 Year
  Sex: Male

DRUGS (2)
  1. TEMODAR [Suspect]
     Active Substance: TEMOZOLOMIDE
     Indication: Oligodendroglioma
     Dosage: TOTAL 12 CYCLES
  2. TEMODAR [Suspect]
     Active Substance: TEMOZOLOMIDE
     Indication: Astrocytoma

REACTIONS (1)
  - Product use in unapproved indication [Unknown]
